FAERS Safety Report 5113337-8 (Version None)
Quarter: 2006Q3

REPORT INFORMATION
  Report Type: 
  Country: None (occurrence: None)
  Receive Date: 20060920
  Receipt Date: 20060912
  Transmission Date: 20061208
  Serious: Yes (Life-Threatening, Hospitalization, Disabling, Other)
  Sender: FDA-Public Use
  Company Number: 2006111016

PATIENT
  Age: 41 Year
  Sex: Male
  Weight: 90.7194 kg

DRUGS (6)
  1. LIPITOR [Suspect]
     Indication: BLOOD CHOLESTEROL INCREASED
     Dosage: 10 YRS AGO
  2. LIPITOR [Suspect]
     Indication: OVERWEIGHT
     Dosage: 10 YRS AGO
  3. INSULIN (INSULIN) [Concomitant]
  4. ASPIRIN [Concomitant]
  5. ENALAPRIL MALEATE [Concomitant]
  6. ZANTAC [Concomitant]

REACTIONS (3)
  - ABASIA [None]
  - CARDIAC DISORDER [None]
  - DIABETIC NEUROPATHY [None]
